FAERS Safety Report 15530309 (Version 2)
Quarter: 2018Q4

REPORT INFORMATION
  Report Type: Spontaneous
  Country: US (occurrence: US)
  Receive Date: 20181018
  Receipt Date: 20181031
  Transmission Date: 20190205
  Serious: Yes (Hospitalization)
  Sender: FDA-Public Use
  Company Number: US-PFIZER INC-2018417112

PATIENT
  Age: 88 Year
  Sex: Male
  Weight: 60.32 kg

DRUGS (2)
  1. IBRANCE [Suspect]
     Active Substance: PALBOCICLIB
     Indication: BREAST CANCER METASTATIC
  2. IBRANCE [Suspect]
     Active Substance: PALBOCICLIB
     Indication: BONE DISORDER
     Dosage: 125 MG, CYCLIC [D1-21 Q 28 DAYS]
     Route: 048
     Dates: start: 20181006, end: 20181023

REACTIONS (2)
  - Pleural effusion [Unknown]
  - Product use in unapproved indication [Unknown]

NARRATIVE: CASE EVENT DATE: 20181006
